FAERS Safety Report 6147002-5 (Version None)
Quarter: 2009Q2

REPORT INFORMATION
  Report Type: 
  Country: None (occurrence: None)
  Receive Date: 20090403
  Receipt Date: 20090326
  Transmission Date: 20091009
  Serious: Yes (Other)
  Sender: FDA-Public Use
  Company Number: 2009SP006846

PATIENT
  Age: 30 Year
  Sex: Male

DRUGS (3)
  1. NASONEX [Suspect]
     Indication: RHINITIS ALLERGIC
     Dosage: NAS
  2. DESLORATADINE [Concomitant]
  3. NASAL SPRAY [Concomitant]

REACTIONS (1)
  - GLAUCOMA [None]
